FAERS Safety Report 11287791 (Version 2)
Quarter: 2015Q3

REPORT INFORMATION
  Report Type: Spontaneous
  Country: US (occurrence: US)
  Receive Date: 20150721
  Receipt Date: 20150805
  Transmission Date: 20151125
  Serious: Yes (Other)
  Sender: FDA-Public Use
  Company Number: US-PERRIGO-15US005811

PATIENT
  Age: 61 Year
  Sex: Female
  Weight: 40.82 kg

DRUGS (17)
  1. NICOTINE 4 MG MINT 873 [Suspect]
     Active Substance: NICOTINE
     Indication: SMOKING CESSATION THERAPY
     Dosage: 4 MG, 30 MINUTES TO ONE HOUR
     Route: 002
     Dates: start: 20150529, end: 20150607
  2. QUETIAPINE [Concomitant]
     Active Substance: QUETIAPINE
     Indication: SLEEP DISORDER
     Dosage: 300 MG, UNK
     Route: 065
     Dates: start: 20150601
  3. ANTIHYPERTENSIVES [Concomitant]
     Active Substance: UNSPECIFIED INGREDIENT
     Indication: HYPERTENSION
     Dosage: UNK
     Route: 065
  4. NICOTINE 4 MG MINT 873 [Suspect]
     Active Substance: NICOTINE
     Dosage: 4 MG, EVERY TWO HOURS
     Route: 002
     Dates: start: 20150608, end: 20150706
  5. NICOTINE 4 MG MINT 873 [Suspect]
     Active Substance: NICOTINE
     Dosage: 4 MG, EVERY 4 TO 5 HOURS
     Route: 002
     Dates: start: 20150707
  6. METHOCARBAMOL. [Concomitant]
     Active Substance: METHOCARBAMOL
     Indication: MUSCLE RELAXANT THERAPY
     Dosage: UNK
     Route: 065
     Dates: start: 20150601
  7. PRESCRIBED PAIN MEDICATION [Concomitant]
     Indication: PAIN
     Route: 065
  8. NICOTINE 4 MG MINT 873 [Suspect]
     Active Substance: NICOTINE
     Dosage: 4 MG, EVERY 30 MINUTES TO ONE HOUR
     Route: 002
     Dates: start: 20150529, end: 20150607
  9. NICOTINE 4 MG MINT 873 [Suspect]
     Active Substance: NICOTINE
     Dosage: 4 MG, EVERY TWO HOURS
     Route: 002
     Dates: start: 20150608, end: 20150706
  10. SOMA [Concomitant]
     Active Substance: CARISOPRODOL
     Indication: MUSCLE RELAXANT THERAPY
     Dosage: 350 MG, UNK
     Route: 065
     Dates: start: 20150601
  11. NICOTINE 4 MG MINT 873 [Suspect]
     Active Substance: NICOTINE
     Dosage: 4 MG, EVERY 4 TO 5 HOURS
     Route: 002
     Dates: start: 20150707
  12. NICOTINE 4 MG MINT 873 [Suspect]
     Active Substance: NICOTINE
     Dosage: 4 MG, EVERY 4 TO 5 HOURS
     Route: 002
     Dates: start: 20150707
  13. GABAPENTIN. [Concomitant]
     Active Substance: GABAPENTIN
     Indication: NERVE INJURY
     Dosage: 800 MG, UNK
     Route: 065
     Dates: start: 20150601
  14. NICOTINE 4 MG MINT 873 [Suspect]
     Active Substance: NICOTINE
     Dosage: 4 MG, EVERY TWO HOURS
     Route: 002
     Dates: start: 20150608, end: 20150706
  15. NICOTINE 4 MG MINT 873 [Suspect]
     Active Substance: NICOTINE
     Dosage: 4 MG, 30 MINUTES TO ONE HOUR
     Route: 002
     Dates: start: 20150529, end: 20150607
  16. BACLOFEN. [Concomitant]
     Active Substance: BACLOFEN
     Indication: MUSCLE RELAXANT THERAPY
     Dosage: 10 MG, UNK
     Route: 065
     Dates: start: 20150601
  17. SUBOXONE [Concomitant]
     Active Substance: BUPRENORPHINE HYDROCHLORIDE\NALOXONE HYDROCHLORIDE
     Indication: PAIN
     Dosage: UNK
     Route: 065
     Dates: start: 20150601

REACTIONS (12)
  - Vomiting [Recovered/Resolved]
  - Discomfort [Not Recovered/Not Resolved]
  - Oral discomfort [Recovered/Resolved]
  - Inappropriate schedule of drug administration [Recovered/Resolved]
  - Dysphagia [Recovered/Resolved]
  - Nausea [Recovering/Resolving]
  - Drug administration error [Recovered/Resolved]
  - Wrong technique in product usage process [Recovered/Resolved]
  - Pharyngeal oedema [Not Recovered/Not Resolved]
  - Feeling abnormal [Recovering/Resolving]
  - Hallucination [Not Recovered/Not Resolved]
  - Photopsia [Not Recovered/Not Resolved]

NARRATIVE: CASE EVENT DATE: 20150529
